FAERS Safety Report 7718667-9 (Version None)
Quarter: 2011Q3

REPORT INFORMATION
  Report Type: 
  Country: None (occurrence: None)
  Receive Date: 20110830
  Receipt Date: 20110822
  Transmission Date: 20111222
  Serious: Yes (Other)
  Sender: FDA-Public Use
  Company Number: US-BAYER-2011-046726

PATIENT
  Age: 27 Year
  Sex: Female
  Weight: 64.853 kg

DRUGS (2)
  1. ZYRTEC [Concomitant]
     Dosage: UNK UNK, PRN
  2. BEYAZ [Suspect]
     Indication: CONTRACEPTION
     Dosage: UNK
     Route: 048
     Dates: start: 20110418

REACTIONS (1)
  - PARAESTHESIA [None]
